FAERS Safety Report 25149649 (Version 1)
Quarter: 2025Q2

REPORT INFORMATION
  Report Type: Spontaneous
  Country: BE (occurrence: BE)
  Receive Date: 20250402
  Receipt Date: 20250402
  Transmission Date: 20250716
  Serious: Yes (Death, Hospitalization)
  Sender: MYLAN
  Company Number: BE-MYLANLABS-2025M1028045

PATIENT
  Age: 30 Year
  Sex: Male

DRUGS (7)
  1. SUMATRIPTAN [Suspect]
     Active Substance: SUMATRIPTAN
     Indication: Migraine
  2. SUMATRIPTAN [Suspect]
     Active Substance: SUMATRIPTAN
  3. EPINEPHRINE [Suspect]
     Active Substance: EPINEPHRINE
     Indication: Cardiac arrest
  4. VALPROIC ACID [Concomitant]
     Active Substance: VALPROIC ACID
     Indication: Mental disorder
  5. PAROXETINE [Concomitant]
     Active Substance: PAROXETINE
     Indication: Mental disorder
  6. LORAZEPAM [Concomitant]
     Active Substance: LORAZEPAM
     Indication: Mental disorder
  7. CLOTHIAPINE [Concomitant]
     Active Substance: CLOTHIAPINE
     Indication: Mental disorder

REACTIONS (9)
  - Cardiac arrest [Fatal]
  - Ventricular fibrillation [Fatal]
  - Arteriospasm coronary [Fatal]
  - Multiple organ dysfunction syndrome [Fatal]
  - Cardiogenic shock [Fatal]
  - Distributive shock [Fatal]
  - Myocardial hypoperfusion [Fatal]
  - Ventricular hypokinesia [Fatal]
  - Drug ineffective [Fatal]
